FAERS Safety Report 13598750 (Version 1)
Quarter: 2017Q2

REPORT INFORMATION
  Report Type: Spontaneous
  Country: RU (occurrence: RU)
  Receive Date: 20170531
  Receipt Date: 20170531
  Transmission Date: 20170830
  Serious: Yes (Other)
  Sender: FDA-Public Use
  Company Number: RU-BAYER-2017-097576

PATIENT
  Age: 29 Year
  Sex: Female

DRUGS (1)
  1. YARINA PLUS [Suspect]
     Active Substance: DROSPIRENONE\ETHINYL ESTRADIOL\LEVOMEFOLATE CALCIUM
     Indication: POLYCYSTIC OVARIES
     Route: 048

REACTIONS (4)
  - Abdominal pain lower [None]
  - Salpingo-oophoritis [None]
  - Off label use [None]
  - Product use in unapproved indication [None]
